FAERS Safety Report 8320657-2 (Version None)
Quarter: 2012Q1

REPORT INFORMATION
  Report Type: 
  Country: None (occurrence: None)
  Receive Date: 20120315
  Receipt Date: 20110419
  Transmission Date: 20120608
  Serious: No
  Sender: FDA-Public Use
  Company Number: PHHY2011US33298

PATIENT
  Age: 45 Year
  Sex: Female
  Weight: 54.4 kg

DRUGS (3)
  1. GILENYA [Suspect]
     Indication: MULTIPLE SCLEROSIS
     Dosage: 0.5 MG, DAILY, ORAL
     Route: 048
     Dates: start: 20110126, end: 20110419
  2. AMPYRA [Concomitant]
  3. OXYBUTYNIN [Suspect]

REACTIONS (3)
  - GROIN PAIN [None]
  - POLYMENORRHOEA [None]
  - ARTHRALGIA [None]
